FAERS Safety Report 5248844-0 (Version None)
Quarter: 2007Q1

REPORT INFORMATION
  Report Type: 
  Country: None (occurrence: None)
  Receive Date: 20070228
  Receipt Date: 20060308
  Transmission Date: 20070707
  Serious: Yes (Hospitalization)
  Sender: FDA-Public Use
  Company Number: US-GLAXOSMITHKLINE-A0596802A

PATIENT
  Age: 48 Year
  Sex: Female

DRUGS (4)
  1. VALTREX [Suspect]
     Dosage: 2CAPL TWICE PER DAY
     Route: 048
     Dates: start: 20060101, end: 20060101
  2. HYDROCHLOROTHIAZIDE [Concomitant]
  3. LIPITOR [Concomitant]
  4. DIOVAN [Concomitant]

REACTIONS (1)
  - CONVULSION [None]
